FAERS Safety Report 5702659-5 (Version None)
Quarter: 2008Q2

REPORT INFORMATION
  Report Type: 
  Country: None (occurrence: None)
  Receive Date: 20080411
  Receipt Date: 20071219
  Transmission Date: 20081010
  Serious: Yes (Other)
  Sender: FDA-Public Use
  Company Number: US-ASTRAZENECA-2007UW28682

PATIENT
  Age: 32 Year
  Sex: Female
  Weight: 59 kg

DRUGS (2)
  1. TENORMIN [Suspect]
     Indication: TACHYCARDIA
     Route: 048
  2. TENORMIN [Suspect]
     Dosage: 1/2 TABLET
     Route: 048

REACTIONS (1)
  - BRADYCARDIA [None]
